FAERS Safety Report 8891211 (Version 1)
Quarter: 2012Q4

REPORT INFORMATION
  Report Type: 
  Country: US (occurrence: US)
  Receive Date: 20121107
  Receipt Date: 20121107
  Transmission Date: 20130627
  Serious: Yes (Death)
  Sender: FDA-Public Use
  Company Number: US-ROCHE-1130074

PATIENT
  Sex: Male

DRUGS (7)
  1. RITUXAN [Suspect]
     Indication: MALIGNANT LYMPHOID NEOPLASM
     Route: 065
  2. RITUXAN [Suspect]
     Indication: CHRONIC LYMPHOCYTIC LEUKAEMIA
     Route: 065
     Dates: start: 20010411
  3. RITUXAN [Suspect]
     Indication: OFF LABEL USE
     Route: 065
     Dates: start: 20010413
  4. CYTOXAN [Concomitant]
     Route: 065
     Dates: start: 20010411
  5. CYTOXAN [Concomitant]
     Route: 065
     Dates: start: 20010413
  6. PENTOSTATIN [Concomitant]
     Route: 065
     Dates: start: 20010411
  7. PENTOSTATIN [Concomitant]
     Route: 065
     Dates: start: 20010413

REACTIONS (1)
  - Death [Fatal]
